FAERS Safety Report 8862075 (Version 1)
Quarter: 2012Q4

REPORT INFORMATION
  Report Type: 
  Country: ES (occurrence: US)
  Receive Date: 20121026
  Receipt Date: 20121026
  Transmission Date: 20130627
  Serious: Yes (Other)
  Sender: FDA-Public Use
  Company Number: US-ELI_LILLY_AND_COMPANY-US201210006094

PATIENT

DRUGS (3)
  1. GEMCITABINE HYDROCHLORIDE [Suspect]
     Indication: NEOPLASM
     Dosage: 1250 mg/m2, other
  2. CISPLATIN [Concomitant]
     Indication: NEOPLASM
     Dosage: 80 mg/m2, other
  3. AXITINIB [Concomitant]
     Indication: NEOPLASM
     Dosage: UNK, bid

REACTIONS (3)
  - Cerebrovascular accident [Unknown]
  - Anaemia [Unknown]
  - Lymphopenia [Unknown]
